FAERS Safety Report 5568251-0 (Version None)
Quarter: 2007Q4

REPORT INFORMATION
  Report Type: 
  Country: None (occurrence: None)
  Receive Date: 20071220
  Receipt Date: 20071219
  Transmission Date: 20080405
  Serious: Yes (Hospitalization)
  Sender: FDA-Public Use
  Company Number: IT-WYE-G00709507

PATIENT
  Sex: Female

DRUGS (3)
  1. TAZOCIN [Suspect]
     Dosage: 4 G
     Route: 042
     Dates: start: 20071122, end: 20071122
  2. CLEXANE [Concomitant]
  3. LIDOCAINE HYDROCHLORIDE [Suspect]
     Dosage: 2MG
     Route: 058
     Dates: start: 20071122, end: 20071122

REACTIONS (3)
  - CONJUNCTIVITIS [None]
  - EYELID OEDEMA [None]
  - FACE OEDEMA [None]
